FAERS Safety Report 15558095 (Version 2)
Quarter: 2018Q4

REPORT INFORMATION
  Report Type: Spontaneous
  Country: US (occurrence: US)
  Receive Date: 20181027
  Receipt Date: 20181123
  Transmission Date: 20190205
  Serious: No
  Sender: FDA-Public Use
  Company Number: US-009507513-1810USA010554

PATIENT
  Age: 39 Year
  Sex: Female
  Weight: 111.11 kg

DRUGS (1)
  1. NEXPLANON [Suspect]
     Active Substance: ETONOGESTREL
     Dosage: 1 IMPLANT IN ARM, EVERY 3 YEARS
     Route: 059
     Dates: start: 20181019

REACTIONS (4)
  - Device difficult to use [Unknown]
  - Product quality issue [Unknown]
  - Complication of device insertion [Unknown]
  - Device deployment issue [Unknown]

NARRATIVE: CASE EVENT DATE: 20181019
